FAERS Safety Report 7810698-3 (Version None)
Quarter: 2011Q4

REPORT INFORMATION
  Report Type: 
  Country: None (occurrence: None)
  Receive Date: 20111013
  Receipt Date: 20111011
  Transmission Date: 20120403
  Serious: Yes (Other)
  Sender: FDA-Public Use
  Company Number: US-BRISTOL-MYERS SQUIBB COMPANY-15985815

PATIENT
  Age: 47 Year
  Sex: Female

DRUGS (15)
  1. OMEPRAZOLE [Concomitant]
  2. HYDROCHLOROTHIAZIDE [Concomitant]
  3. ABILIFY [Suspect]
     Indication: BIPOLAR DISORDER
     Dosage: GRADUALLY INCREASWED TO 10MG
     Route: 048
     Dates: start: 20080417
  4. INVEGA [Concomitant]
  5. LOVAZA [Concomitant]
     Indication: CARDIAC DISORDER
  6. PROVENTIL [Concomitant]
  7. SPIRIVA [Concomitant]
  8. SPIRONOLACTONE [Concomitant]
  9. BISACODYL [Concomitant]
  10. FUROSEMIDE [Concomitant]
  11. SEROQUEL [Concomitant]
  12. ATENOLOL [Concomitant]
  13. EFFEXOR [Concomitant]
  14. BUSPIRONE [Concomitant]
  15. LIPITOR [Concomitant]

REACTIONS (10)
  - COUGH [None]
  - OEDEMA PERIPHERAL [None]
  - SPEECH DISORDER [None]
  - ARTHRALGIA [None]
  - SWELLING [None]
  - WEIGHT INCREASED [None]
  - URINARY INCONTINENCE [None]
  - DYSKINESIA [None]
  - MALAISE [None]
  - CARDIAC FAILURE CONGESTIVE [None]
